FAERS Safety Report 24971473 (Version 2)
Quarter: 2025Q1

REPORT INFORMATION
  Report Type: Report from Study
  Country: US (occurrence: US)
  Receive Date: 20250214
  Receipt Date: 20250312
  Transmission Date: 20250409
  Serious: No
  Sender: TAIHO ONCOLOGY INC
  Company Number: US-TAIHOP-2025-001494

PATIENT
  Age: 54 Year
  Sex: Female
  Weight: 96.9 kg

DRUGS (1)
  1. LONSURF [Suspect]
     Active Substance: TIPIRACIL HYDROCHLORIDE\TRIFLURIDINE
     Indication: Colon cancer
     Dosage: FORM STRENGTH 15MG AND 20MG?CYCLE UNKNOWN
     Route: 048
     Dates: start: 20250216

REACTIONS (5)
  - Brain fog [Unknown]
  - Product dose omission in error [Unknown]
  - Fatigue [Unknown]
  - Arthralgia [Unknown]
  - Incorrect dose administered [Unknown]
